FAERS Safety Report 8083849-6 (Version None)
Quarter: 2012Q1

REPORT INFORMATION
  Report Type: 
  Country: None (occurrence: None)
  Receive Date: 20120128
  Receipt Date: 20110207
  Transmission Date: 20120608
  Serious: No
  Sender: FDA-Public Use
  Company Number: US-ABBOTT-11P-163-0703124-00

PATIENT
  Sex: Female
  Weight: 84.444 kg

DRUGS (3)
  1. HUMIRA [Suspect]
     Indication: RHEUMATOID ARTHRITIS
     Route: 058
     Dates: start: 20110201
  2. ZOLOFT [Concomitant]
     Indication: ANXIETY
     Route: 048
  3. HUMIRA [Suspect]
     Route: 058
     Dates: start: 20090101, end: 20101201

REACTIONS (1)
  - TREMOR [None]
